FAERS Safety Report 8836216 (Version 1)
Quarter: 2012Q4

REPORT INFORMATION
  Report Type: 
  Country: US (occurrence: US)
  Receive Date: 20121011
  Receipt Date: 20121011
  Transmission Date: 20130627
  Serious: Yes (Other)
  Sender: FDA-Public Use
  Company Number: US-PFIZER INC-2012248974

PATIENT
  Age: 46 Year
  Sex: Female
  Weight: 88.44 kg

DRUGS (3)
  1. PROPRANOLOL [Concomitant]
     Indication: MIGRAINE PROPHYLAXIS
     Dosage: 40 mg, as needed
  2. LYRICA [Suspect]
     Indication: NEUROPATHY PERIPHERAL
     Dosage: 300 mg, 3x/day
  3. LYRICA [Suspect]
     Indication: FIBROMYALGIA

REACTIONS (7)
  - Blood pressure decreased [Unknown]
  - Nervous system disorder [Unknown]
  - Herpes zoster [Unknown]
  - Hypoaesthesia [Unknown]
  - Pre-existing condition improved [Unknown]
  - Therapeutic response unexpected [Unknown]
  - Bone pain [Unknown]
